FAERS Safety Report 11782058 (Version 2)
Quarter: 2015Q4

REPORT INFORMATION
  Report Type: Spontaneous
  Country: AU (occurrence: AU)
  Receive Date: 20151126
  Receipt Date: 20151223
  Transmission Date: 20160305
  Serious: Yes (Death, Hospitalization)
  Sender: FDA-Public Use
  Company Number: AU-009507513-1508AUS013877

PATIENT
  Age: 23 Year
  Sex: Male

DRUGS (5)
  1. KEYTRUDA [Suspect]
     Active Substance: PEMBROLIZUMAB
     Dosage: 4TH CYCLE
     Dates: start: 2015, end: 2015
  2. KEYTRUDA [Suspect]
     Active Substance: PEMBROLIZUMAB
     Dosage: 3RD CYCLE
     Dates: start: 2015, end: 2015
  3. KEYTRUDA [Suspect]
     Active Substance: PEMBROLIZUMAB
     Dosage: 1ST CYCLE
     Dates: start: 2015, end: 2015
  4. KEYTRUDA [Suspect]
     Active Substance: PEMBROLIZUMAB
     Indication: SARCOMA
     Dosage: 5TH CYCLE
     Dates: start: 2015, end: 2015
  5. KEYTRUDA [Suspect]
     Active Substance: PEMBROLIZUMAB
     Dosage: 2ND CYCLE
     Dates: start: 2015, end: 2015

REACTIONS (2)
  - Malignant neoplasm progression [Fatal]
  - Off label use [Unknown]

NARRATIVE: CASE EVENT DATE: 2015
